FAERS Safety Report 4294018-X (Version None)
Quarter: 2004Q1

REPORT INFORMATION
  Report Type: 
  Country: None (occurrence: None)
  Receive Date: 20040211
  Receipt Date: 20040127
  Transmission Date: 20041129
  Serious: Yes (Other)
  Sender: FDA-Public Use
  Company Number: USA040157658

PATIENT
  Age: 86 Year
  Sex: Female

DRUGS (5)
  1. FORTEO [Suspect]
     Indication: OSTEOPOROSIS
     Dates: start: 20031127
  2. COUMADIN [Concomitant]
  3. SYNTHROID [Concomitant]
  4. AMBIEN (ZOLIPIDEM TARTRATE) [Concomitant]
  5. MEGACE [Concomitant]

REACTIONS (4)
  - CLAVICLE FRACTURE [None]
  - DIZZINESS [None]
  - FALL [None]
  - RIB FRACTURE [None]
